FAERS Safety Report 6275047-3 (Version None)
Quarter: 2009Q3

REPORT INFORMATION
  Report Type: 
  Country: None (occurrence: None)
  Receive Date: 20090721
  Receipt Date: 20090710
  Transmission Date: 20100115
  Serious: Yes (Hospitalization)
  Sender: FDA-Public Use
  Company Number: JP-AMGEN-US353072

PATIENT
  Sex: Female
  Weight: 45 kg

DRUGS (21)
  1. ENBREL [Suspect]
     Indication: RHEUMATOID ARTHRITIS
     Dosage: LYOPHILIZED: 25 MG ONCE WEEKLY
     Route: 058
     Dates: start: 20070607
  2. ENBREL [Suspect]
     Dosage: LYOPHILIZED: 25 MG TWICE WEEKLY
     Route: 058
     Dates: start: 20070730, end: 20080110
  3. ENBREL [Suspect]
     Dosage: LYOPHILIZED: 25 MG TWICE WEEKLY
     Route: 058
     Dates: start: 20080410, end: 20081127
  4. ENBREL [Suspect]
     Route: 058
     Dates: start: 20090211
  5. ENBREL [Suspect]
     Route: 058
     Dates: start: 20090416, end: 20090525
  6. PREDNISOLONE [Suspect]
     Indication: RHEUMATOID ARTHRITIS
     Route: 048
     Dates: start: 20070426, end: 20081112
  7. PREDNISOLONE [Suspect]
     Route: 048
     Dates: start: 20081113
  8. RHEUMATREX [Suspect]
     Indication: RHEUMATOID ARTHRITIS
     Route: 048
     Dates: start: 20070426
  9. LOXONIN [Concomitant]
     Indication: RHEUMATOID ARTHRITIS
     Route: 048
     Dates: start: 20070125, end: 20080528
  10. MUCOSTA [Concomitant]
     Indication: PROPHYLAXIS
     Route: 048
     Dates: start: 20070125
  11. ASPIRIN [Concomitant]
     Indication: CEREBRAL INFARCTION
     Route: 048
     Dates: end: 20080528
  12. ORGAN LYSATE, STANDARDIZED [Concomitant]
     Indication: NEUROPATHY PERIPHERAL
     Route: 048
     Dates: start: 20090219
  13. ISCOTIN [Concomitant]
     Indication: BACTERIAL DISEASE CARRIER
     Route: 048
     Dates: start: 20070607, end: 20080423
  14. FERROMIA [Concomitant]
     Indication: ANAEMIA
     Route: 048
     Dates: start: 20071227, end: 20080528
  15. GASTER [Concomitant]
     Indication: PROPHYLAXIS
     Route: 048
     Dates: start: 20070426
  16. ADALAT CC [Concomitant]
     Indication: HYPERTENSION
     Route: 048
     Dates: start: 20080612
  17. ADALAT CC [Concomitant]
     Route: 048
     Dates: start: 20081030
  18. OLMETEC [Concomitant]
     Indication: HYPERTENSION
     Route: 048
     Dates: start: 20080612
  19. OLMETEC [Concomitant]
     Route: 048
     Dates: start: 20081030
  20. CYANOCOBALAMIN [Concomitant]
     Indication: NEUROPATHY PERIPHERAL
     Route: 048
     Dates: start: 20090219
  21. FOLIAMIN [Concomitant]
     Indication: PROPHYLAXIS
     Route: 048
     Dates: start: 20070125

REACTIONS (5)
  - ARTHRITIS INFECTIVE [None]
  - CELLULITIS [None]
  - KNEE ARTHROPLASTY [None]
  - POST PROCEDURAL INFECTION [None]
  - PRURITUS [None]
